FAERS Safety Report 8305523-0 (Version None)
Quarter: 2012Q2

REPORT INFORMATION
  Report Type: 
  Country: None (occurrence: None)
  Receive Date: 20120423
  Receipt Date: 20120416
  Transmission Date: 20120825
  Serious: Yes (Other)
  Sender: FDA-Public Use
  Company Number: IE-GLAXOSMITHKLINE-B0795471A

PATIENT
  Age: 70 Year
  Sex: Female

DRUGS (1)
  1. BACTROBAN [Suspect]
     Indication: STAPHYLOCOCCAL INFECTION
     Route: 065
     Dates: start: 20120317, end: 20120319

REACTIONS (3)
  - EYE SWELLING [None]
  - RASH ERYTHEMATOUS [None]
  - HYPERSENSITIVITY [None]
